FAERS Safety Report 4656466-5 (Version None)
Quarter: 2005Q2

REPORT INFORMATION
  Report Type: 
  Country: None (occurrence: None)
  Receive Date: 20050504
  Receipt Date: 20050422
  Transmission Date: 20051028
  Serious: Yes (Hospitalization)
  Sender: FDA-Public Use
  Company Number: 05P-013-0290892-00

PATIENT
  Age: 65 Year
  Sex: Female
  Weight: 78 kg

DRUGS (6)
  1. SIBUTRAMINE (BLINDED) (SIBUTRAMINE) (SIBUTRAMINE) [Suspect]
     Indication: OBESITY
     Dosage: 10 MG, 1 IN 1 D, PER ORAL
     Route: 048
     Dates: start: 20030916, end: 20041109
  2. HYOSCINE HBR HYT [Concomitant]
  3. METOPROLOL [Concomitant]
  4. OMEPRAZOLE [Concomitant]
  5. ATORVASTATIN CALCIUM [Concomitant]
  6. CLOPIDOGREL BISULFATE [Concomitant]

REACTIONS (11)
  - ACTIVATED PARTIAL THROMBOPLASTIN TIME PROLONGED [None]
  - BLOOD HUMAN CHORIONIC GONADOTROPIN POSITIVE [None]
  - CULTURE URINE POSITIVE [None]
  - ESCHERICHIA URINARY TRACT INFECTION [None]
  - GRAM STAIN NEGATIVE [None]
  - HYDRONEPHROSIS [None]
  - JUVENILE ARTHRITIS [None]
  - LYMPHOMA [None]
  - RENAL NEOPLASM [None]
  - RETROPERITONEAL FIBROSIS [None]
  - URINARY TRACT INFECTION FUNGAL [None]
